FAERS Safety Report 22014888 (Version 1)
Quarter: 2023Q1

REPORT INFORMATION
  Report Type: Spontaneous
  Country: CN (occurrence: None)
  Receive Date: 20230221
  Receipt Date: 20230221
  Transmission Date: 20230418
  Serious: Yes (Other)
  Sender: FDA-Public Use
  Company Number: CN-ROCHE-3287888

PATIENT
  Age: 69 Year
  Sex: Male

DRUGS (3)
  1. GAZYVA [Suspect]
     Active Substance: OBINUTUZUMAB
     Indication: Mantle cell lymphoma stage III
     Dosage: B-G REGIMEN FOR 5 CYCLES,D1
     Route: 065
     Dates: start: 20220620, end: 20221018
  2. BENDAMUSTINE [Concomitant]
     Active Substance: BENDAMUSTINE
     Indication: Mantle cell lymphoma stage III
     Dosage: B-G REGIMEN FOR 5 CYCLES,D1
     Route: 065
     Dates: start: 20220620, end: 20221018
  3. BENDAMUSTINE [Concomitant]
     Active Substance: BENDAMUSTINE
     Dosage: B-G REGIMEN FOR 5 CYCLES,D2
     Route: 065
     Dates: start: 20220620, end: 20221018

REACTIONS (2)
  - Lymphocyte count decreased [Unknown]
  - Off label use [Unknown]
